FAERS Safety Report 6278376-2 (Version None)
Quarter: 2009Q3

REPORT INFORMATION
  Report Type: 
  Country: None (occurrence: None)
  Receive Date: 20090722
  Receipt Date: 20090710
  Transmission Date: 20100115
  Serious: Yes (Other)
  Sender: FDA-Public Use
  Company Number: IE-GENENTECH-265444

PATIENT
  Sex: Female
  Weight: 70 kg

DRUGS (5)
  1. XOLAIR [Suspect]
     Indication: ASTHMA
     Dosage: 375 MG, Q2W
     Route: 058
     Dates: start: 20070312, end: 20080617
  2. XOLAIR [Suspect]
     Dosage: 375 MG, Q2W
     Route: 058
     Dates: start: 20080718
  3. SERETIDE [Concomitant]
     Indication: DRUG USE FOR UNKNOWN INDICATION
     Dosage: 500 MG, UNK
  4. VENTOLIN [Concomitant]
     Indication: DRUG USE FOR UNKNOWN INDICATION
  5. TELFAST [Concomitant]
     Indication: DRUG USE FOR UNKNOWN INDICATION
     Dosage: UNK

REACTIONS (2)
  - ABORTION SPONTANEOUS [None]
  - DRUG EXPOSURE DURING PREGNANCY [None]
